FAERS Safety Report 20769859 (Version 2)
Quarter: 2022Q2

REPORT INFORMATION
  Report Type: Spontaneous
  Country: ES (occurrence: ES)
  Receive Date: 20220429
  Receipt Date: 20220519
  Transmission Date: 20220721
  Serious: Yes (Hospitalization)
  Sender: FDA-Public Use
  Company Number: None

PATIENT
  Age: 76 Year
  Sex: Female

DRUGS (8)
  1. FONDAPARINUX [Suspect]
     Active Substance: FONDAPARINUX
     Indication: Product used for unknown indication
     Dosage: UNK UNK, BID, C/24 H
     Route: 058
     Dates: start: 20220329, end: 20220401
  2. BEMIPARIN [Suspect]
     Active Substance: BEMIPARIN
     Indication: Product used for unknown indication
     Dosage: 1 DOSAGE FORM, BID, 1 DOSE 24 HOURS(JER PREC C/24 H)
     Route: 058
     Dates: start: 20220327, end: 20220330
  3. PANTOPRAZOL STADA [Concomitant]
     Indication: Diaphragmatic hernia
     Dosage: 20 MILLIGRAM (20 MG)
     Route: 065
     Dates: start: 20220105
  4. SINTROM [Concomitant]
     Active Substance: ACENOCOUMAROL
     Indication: Atrial fibrillation
     Dosage: 4 MILLIGRAM (4 MG)
     Route: 065
     Dates: start: 20220201
  5. DIGOXIN [Concomitant]
     Active Substance: DIGOXIN
     Indication: Cardiac disorder
     Dosage: 0.25 MILLIGRAM (0.25 MG)
     Route: 065
     Dates: start: 20210515
  6. JANUMET [Concomitant]
     Active Substance: METFORMIN HYDROCHLORIDE\SITAGLIPTIN PHOSPHATE
     Indication: Diabetes mellitus
     Dosage: UNK, 1000/50 MILLIGRAM
     Route: 065
     Dates: start: 20211123
  7. BARNIDIPINE HYDROCHLORIDE [Concomitant]
     Active Substance: BARNIDIPINE HYDROCHLORIDE
     Indication: Cardiac disorder
     Dosage: 10 MILLIGRAM (10 MG)
     Route: 065
     Dates: start: 20210515
  8. FUROSEMIDE [Concomitant]
     Active Substance: FUROSEMIDE
     Indication: Cardiac disorder
     Dosage: 40 MILLIGRAM (40 MG)
     Route: 065
     Dates: start: 20210515

REACTIONS (3)
  - Injection site injury [Recovering/Resolving]
  - Cellulitis [Recovered/Resolved]
  - Skin oedema [Recovering/Resolving]

NARRATIVE: CASE EVENT DATE: 20220329
